FAERS Safety Report 4420948-1 (Version None)
Quarter: 2004Q3

REPORT INFORMATION
  Report Type: 
  Country: None (occurrence: None)
  Receive Date: 20040809
  Receipt Date: 20040728
  Transmission Date: 20050211
  Serious: Yes (Other)
  Sender: FDA-Public Use
  Company Number: US-JNJFOC-20040701294

PATIENT
  Sex: Female
  Weight: 62.6 kg

DRUGS (4)
  1. REMICADE [Suspect]
     Route: 042
  2. FIBERCON [Concomitant]
     Route: 049
  3. TOPROL-XL [Concomitant]
     Indication: HYPERTENSION
     Route: 049
  4. TOPROL-XL [Concomitant]
     Route: 049

REACTIONS (1)
  - LUPUS-LIKE SYNDROME [None]
